FAERS Safety Report 11716510 (Version 2)
Quarter: 2015Q4

REPORT INFORMATION
  Report Type: Spontaneous
  Country: GB (occurrence: GB)
  Receive Date: 20151109
  Receipt Date: 20151119
  Transmission Date: 20160304
  Serious: Yes (Death, Hospitalization)
  Sender: FDA-Public Use
  Company Number: GB-VIFOR (INTERNATIONAL) INC.-VIT-2015-03065

PATIENT
  Age: 83 Year
  Sex: Female

DRUGS (1)
  1. MIRCERA [Suspect]
     Active Substance: METHOXY POLYETHYLENE GLYCOL-EPOETIN BETA
     Indication: PRODUCT USED FOR UNKNOWN INDICATION
     Dosage: 50MCG/0.3ML
     Route: 065

REACTIONS (4)
  - Death [Fatal]
  - Cardiac failure [Unknown]
  - Fall [Unknown]
  - Renal failure [Unknown]

NARRATIVE: CASE EVENT DATE: 20151031
